FAERS Safety Report 6230368-5 (Version None)
Quarter: 2009Q2

REPORT INFORMATION
  Report Type: 
  Country: None (occurrence: None)
  Receive Date: 20090611
  Receipt Date: 20090526
  Transmission Date: 20091009
  Serious: No
  Sender: FDA-Public Use
  Company Number: PPC200900084

PATIENT
  Age: 33 Year
  Sex: Female

DRUGS (6)
  1. VANCOMYCIN HYDROCHLORIDE [Suspect]
     Indication: CELLULITIS
     Dosage: 1 GM, ONCE
  2. VANCOMYCIN HYDROCHLORIDE [Suspect]
     Indication: FEBRILE NEUTROPENIA
     Dosage: 1 GM, ONCE
  3. CEFIPIME (CEFEPIME) [Suspect]
     Indication: CELLULITIS
     Dosage: 1 GM, TWICE
  4. CEFIPIME (CEFEPIME) [Suspect]
     Indication: FEBRILE NEUTROPENIA
     Dosage: 1 GM, TWICE
  5. CIPROFLOXACIN [Suspect]
     Indication: CELLULITIS
     Dosage: 200 MG, TWICE
  6. CIPROFLOXACIN [Suspect]
     Indication: FEBRILE NEUTROPENIA
     Dosage: 200 MG, TWICE

REACTIONS (2)
  - BLOOD CREATININE INCREASED [None]
  - STATUS EPILEPTICUS [None]
